FAERS Safety Report 13923485 (Version 1)
Quarter: 2017Q3

REPORT INFORMATION
  Report Type: Spontaneous
  Country: US (occurrence: US)
  Receive Date: 20170830
  Receipt Date: 20170830
  Transmission Date: 20171127
  Serious: Yes (Other)
  Sender: FDA-Public Use
  Company Number: None

PATIENT
  Age: 70 Year
  Sex: Female
  Weight: 85.5 kg

DRUGS (4)
  1. LEXAPRO [Concomitant]
     Active Substance: ESCITALOPRAM OXALATE
  2. RANITIDINE. [Concomitant]
     Active Substance: RANITIDINE
  3. ATORVASTATIN [Concomitant]
     Active Substance: ATORVASTATIN
  4. AMLODIPINE BESYLATE. [Suspect]
     Active Substance: AMLODIPINE BESYLATE
     Indication: PREHYPERTENSION
     Dosage: AT BEDTIME
     Route: 048
     Dates: start: 20140401, end: 20170703

REACTIONS (4)
  - Vomiting [None]
  - Diarrhoea [None]
  - Condition aggravated [None]
  - Abdominal migraine [None]

NARRATIVE: CASE EVENT DATE: 20170716
